FAERS Safety Report 6348789-9 (Version None)
Quarter: 2009Q3

REPORT INFORMATION
  Report Type: 
  Country: None (occurrence: None)
  Receive Date: 20090911
  Receipt Date: 20090901
  Transmission Date: 20100115
  Serious: Yes (Other)
  Sender: FDA-Public Use
  Company Number: JP-AMGEN-US359838

PATIENT
  Sex: Female
  Weight: 45 kg

DRUGS (10)
  1. ENBREL [Suspect]
     Indication: RHEUMATOID ARTHRITIS
     Dosage: 25 MG ONCE WEEKLY; LYOPHILIZED
     Route: 058
     Dates: start: 20060628
  2. ENBREL [Suspect]
     Dosage: 25 MG ONCE WEEKLY; SOLUTION FOR INJECTION
     Route: 058
  3. PREDONINE [Concomitant]
     Indication: RHEUMATOID ARTHRITIS
     Route: 048
     Dates: start: 20070125, end: 20070620
  4. PREDONINE [Concomitant]
     Route: 048
     Dates: start: 20070621
  5. INFREE [Concomitant]
     Indication: RHEUMATOID ARTHRITIS
     Route: 048
     Dates: start: 20060601, end: 20060802
  6. CYTOTEC [Concomitant]
     Indication: PROPHYLAXIS AGAINST GASTROINTESTINAL ULCER
     Route: 048
     Dates: start: 20060601, end: 20060830
  7. RHEUMATREX [Concomitant]
     Indication: RHEUMATOID ARTHRITIS
     Route: 048
     Dates: start: 20060601, end: 20080130
  8. RHEUMATREX [Concomitant]
     Route: 048
     Dates: start: 20080131
  9. MEDROL [Concomitant]
     Indication: RHEUMATOID ARTHRITIS
     Route: 048
     Dates: start: 20060601, end: 20060802
  10. MEDROL [Concomitant]
     Route: 048
     Dates: start: 20060803, end: 20060830

REACTIONS (4)
  - BASAL CELL CARCINOMA [None]
  - NEOPLASM SKIN [None]
  - RASH [None]
  - SKIN DISCOLOURATION [None]
